FAERS Safety Report 9060377 (Version 2)
Quarter: 2013Q3

REPORT INFORMATION
  Report Type: Spontaneous
  Country: IE (occurrence: IE)
  Receive Date: 20130212
  Receipt Date: 20130712
  Transmission Date: 20140515
  Serious: No
  Sender: FDA-Public Use
  Company Number: IE-ASTRAZENECA-2013SE09264

PATIENT
  Age: 27 Month
  Sex: Male

DRUGS (9)
  1. SYNAGIS [Suspect]
     Indication: HEART DISEASE CONGENITAL
     Route: 030
     Dates: start: 20111020
  2. CAPTOPRIL [Concomitant]
  3. SPIRONOLACTONE [Concomitant]
  4. ASPIRIN [Concomitant]
  5. FUROSEMIDE [Concomitant]
  6. SALBUTAMOL [Concomitant]
  7. SILDENAFIL [Concomitant]
  8. AZITHROMYCIN [Concomitant]
  9. BECLOMETASONE [Concomitant]

REACTIONS (1)
  - Pneumonia [Recovering/Resolving]
